FAERS Safety Report 7777450-9 (Version None)
Quarter: 2011Q3

REPORT INFORMATION
  Report Type: 
  Country: None (occurrence: None)
  Receive Date: 20110926
  Receipt Date: 20110912
  Transmission Date: 20111222
  Serious: Yes (Hospitalization)
  Sender: FDA-Public Use
  Company Number: FR-ASTRAZENECA-2011SE18006

PATIENT
  Age: 11203 Day
  Sex: Female

DRUGS (20)
  1. EXFORGE [Concomitant]
     Dosage: 1 DF DAILY (AMLODIPINE 5 MG+VALSARTAN 160 MG)
     Dates: start: 20110204
  2. PAROXETINE HCL [Concomitant]
  3. LEVEMIR [Concomitant]
  4. NOVORAPID [Concomitant]
  5. NEXIUM [Concomitant]
     Dates: start: 20110205, end: 20110214
  6. MYCOPHENOLATE MOFETIL (CELLCEPT) [Concomitant]
     Dates: start: 20110205
  7. EUPRESSYL [Concomitant]
     Dates: start: 20110204
  8. MEROPENEM [Suspect]
     Route: 042
     Dates: start: 20110207, end: 20110213
  9. PROGRAF [Suspect]
     Route: 048
     Dates: end: 20110206
  10. LASIX [Concomitant]
     Dates: start: 20110209, end: 20110211
  11. PROGRAF [Suspect]
     Route: 048
     Dates: start: 20110214
  12. VALGANCICLOVIR [Concomitant]
     Dates: start: 20110205
  13. CREON [Concomitant]
  14. TERCIAN [Concomitant]
  15. RAMIPRIL [Concomitant]
     Dates: start: 20110204
  16. KAYEXALATE [Concomitant]
     Dates: start: 20110204
  17. ATENOLOL [Concomitant]
     Dates: start: 20110204
  18. PREDNISONE [Concomitant]
     Dates: start: 20110214
  19. KEPPRA [Concomitant]
  20. CALCIDIA [Concomitant]

REACTIONS (1)
  - CHOLESTASIS [None]
